FAERS Safety Report 22220510 (Version 1)
Quarter: 2023Q2

REPORT INFORMATION
  Report Type: Spontaneous
  Country: LU (occurrence: LU)
  Receive Date: 20230417
  Receipt Date: 20230417
  Transmission Date: 20230721
  Serious: Yes (Death, Life-Threatening, Hospitalization)
  Sender: FDA-Public Use
  Company Number: None

PATIENT
  Age: 83 Year
  Sex: Male

DRUGS (3)
  1. XARELTO [Suspect]
     Active Substance: RIVAROXABAN
     Indication: Atrial fibrillation
     Route: 048
     Dates: start: 202301
  2. LEVOFLOXACIN [Suspect]
     Active Substance: LEVOFLOXACIN
     Indication: Urosepsis
     Route: 048
     Dates: start: 20230306
  3. FENTANIL [FENTANYL] [Concomitant]
     Indication: Palliative care
     Dosage: 1 DF, TID
     Route: 062
     Dates: start: 20230306

REACTIONS (2)
  - Splenic infarction [Fatal]
  - Splenic artery thrombosis [Fatal]

NARRATIVE: CASE EVENT DATE: 20230308
